FAERS Safety Report 23395313 (Version 2)
Quarter: 2024Q1

REPORT INFORMATION
  Report Type: Spontaneous
  Country: US (occurrence: US)
  Receive Date: 20240112
  Receipt Date: 20240313
  Transmission Date: 20240410
  Serious: No
  Sender: FDA-Public Use
  Company Number: US-Calliditas-2024CAL00015

PATIENT
  Age: 43 Year
  Sex: Male

DRUGS (1)
  1. TARPEYO [Suspect]
     Active Substance: BUDESONIDE
     Indication: IgA nephropathy
     Dosage: 16 MG (4 MG CAPSULES) ONCE DAILY
     Route: 048
     Dates: start: 20230816

REACTIONS (7)
  - Nail growth abnormal [Unknown]
  - Impaired healing [Unknown]
  - Nail disorder [Unknown]
  - Hair disorder [Unknown]
  - Increased tendency to bruise [Unknown]
  - Arthritis [Unknown]
  - Pain in extremity [Unknown]
